FAERS Safety Report 9966011 (Version 1)
Quarter: 2014Q1

REPORT INFORMATION
  Report Type: Report from Study
  Country: US (occurrence: US)
  Receive Date: 20140305
  Receipt Date: 20140305
  Transmission Date: 20141002
  Serious: No
  Sender: FDA-Public Use
  Company Number: US-ABBVIE-13P-163-1127601-00

PATIENT
  Age: 33 Year
  Sex: Female
  Weight: 92.62 kg

DRUGS (4)
  1. HUMIRA [Suspect]
     Indication: CROHN^S DISEASE
     Route: 058
     Dates: start: 20130626
  2. IMURAN [Concomitant]
     Indication: CROHN^S DISEASE
     Dates: start: 201306
  3. APRISO [Concomitant]
     Indication: CROHN^S DISEASE
     Dates: start: 2012
  4. BIRTH CONTROL [Concomitant]
     Indication: PRODUCT USED FOR UNKNOWN INDICATION

REACTIONS (4)
  - Ear infection [Recovering/Resolving]
  - Injection site erythema [Not Recovered/Not Resolved]
  - Injection site pruritus [Not Recovered/Not Resolved]
  - Injection site swelling [Not Recovered/Not Resolved]
